FAERS Safety Report 4830541-4 (Version None)
Quarter: 2005Q4

REPORT INFORMATION
  Report Type: 
  Country: None (occurrence: None)
  Receive Date: 20051115
  Receipt Date: 20051101
  Transmission Date: 20060501
  Serious: Yes (Hospitalization, Other)
  Sender: FDA-Public Use
  Company Number: 2005-01924

PATIENT
  Age: 70 Year
  Sex: Male

DRUGS (6)
  1. VELCADE [Suspect]
     Indication: MANTLE CELL LYMPHOMA
     Dosage: 2.60 MG, IV BOLUS; SEE IMAGE
     Route: 042
     Dates: start: 20050815, end: 20050825
  2. VELCADE [Suspect]
     Indication: MANTLE CELL LYMPHOMA
     Dosage: 2.60 MG, IV BOLUS; SEE IMAGE
     Route: 042
     Dates: start: 20050906, end: 20050906
  3. RITUXAN [Concomitant]
  4. DECADRON [Concomitant]
  5. THALIDOMIDE [Concomitant]
  6. SODIUM CHLORIDE [Concomitant]

REACTIONS (33)
  - ANAEMIA [None]
  - ASTHENIA [None]
  - BACTERIAL INFECTION [None]
  - BLOOD ALKALINE PHOSPHATASE INCREASED [None]
  - BLOOD BILIRUBIN INCREASED [None]
  - BLOOD GLUCOSE INCREASED [None]
  - BLOOD IMMUNOGLOBULIN A DECREASED [None]
  - BLOOD IMMUNOGLOBULIN M DECREASED [None]
  - BLOOD LACTATE DEHYDROGENASE INCREASED [None]
  - BONE DISORDER [None]
  - CELLULITIS [None]
  - CENTRAL NERVOUS SYSTEM INFECTION [None]
  - DIARRHOEA [None]
  - DIFFICULTY IN WALKING [None]
  - ESCHERICHIA BACTERAEMIA [None]
  - ESCHERICHIA SEPSIS [None]
  - HAEMOGLOBIN DECREASED [None]
  - HYPERGLYCAEMIA [None]
  - HYPOGAMMAGLOBULINAEMIA [None]
  - LUNG NEOPLASM [None]
  - LYMPHOPENIA [None]
  - MENINGITIS [None]
  - MOVEMENT DISORDER [None]
  - OEDEMA PERIPHERAL [None]
  - PANCYTOPENIA [None]
  - PLATELET COUNT DECREASED [None]
  - POLYNEUROPATHY [None]
  - PROTHROMBIN TIME PROLONGED [None]
  - SPINAL COLUMN STENOSIS [None]
  - SPINAL OSTEOARTHRITIS [None]
  - THROMBOCYTOPENIA [None]
  - VOCAL CORD PARALYSIS [None]
  - WHITE BLOOD CELL COUNT DECREASED [None]
